FAERS Safety Report 15373508 (Version 1)
Quarter: 2018Q3

REPORT INFORMATION
  Report Type: Spontaneous
  Country: US (occurrence: US)
  Receive Date: 20180912
  Receipt Date: 20180912
  Transmission Date: 20181010
  Serious: No
  Sender: FDA-Public Use
  Company Number: US-ASTRAZENECA-2018SF03556

PATIENT
  Sex: Female

DRUGS (5)
  1. HYDROXYCHLOROQUINE [Concomitant]
     Active Substance: HYDROXYCHLOROQUINE
     Route: 048
     Dates: start: 20170907
  2. ATORVASTATIN [Concomitant]
     Active Substance: ATORVASTATIN
     Route: 048
     Dates: start: 20180707
  3. PULMICORT FLEXHALER [Suspect]
     Active Substance: BUDESONIDE
     Dosage: 180UG, 2 PUFFS, TWO TIMES A DAY
     Route: 055
  4. PREDNISONE. [Concomitant]
     Active Substance: PREDNISONE
     Dosage: 2.0DF AS REQUIRED
     Route: 048
     Dates: start: 20180813
  5. VENTOLIN/ ALBUTEROL INHALER [Concomitant]
     Dosage: 90UG, 2 PUFFS EVERY 4?6 HOURS AS NEEDED
     Route: 055
     Dates: start: 20180707

REACTIONS (4)
  - Device issue [Unknown]
  - Drug ineffective [Unknown]
  - Wheezing [Unknown]
  - Device failure [Unknown]
